FAERS Safety Report 6387832-8 (Version None)
Quarter: 2009Q4

REPORT INFORMATION
  Report Type: 
  Country: None (occurrence: None)
  Receive Date: 20091005
  Receipt Date: 20090928
  Transmission Date: 20100525
  Serious: Yes (Other)
  Sender: FDA-Public Use
  Company Number: US-JNJFOC-20090709223

PATIENT
  Age: 14 Year
  Sex: Male
  Weight: 56.7 kg

DRUGS (3)
  1. CONCERTA [Suspect]
     Route: 048
  2. CONCERTA [Suspect]
     Route: 048
  3. CONCERTA [Suspect]
     Indication: ATTENTION DEFICIT/HYPERACTIVITY DISORDER
     Route: 048

REACTIONS (4)
  - GROWTH RETARDATION [None]
  - REFUSAL OF TREATMENT BY PATIENT [None]
  - THERAPY CESSATION [None]
  - VOMITING [None]
